FAERS Safety Report 8619482-4 (Version None)
Quarter: 2012Q3

REPORT INFORMATION
  Report Type: 
  Country: None (occurrence: None)
  Receive Date: 20120824
  Receipt Date: 20120821
  Transmission Date: 20120928
  Serious: Yes (Life-Threatening, Hospitalization)
  Sender: FDA-Public Use
  Company Number: JP-PFIZER INC-2012146621

PATIENT
  Age: 76 Year
  Sex: Female
  Weight: 48 kg

DRUGS (4)
  1. VALSARTAN  AND HYDROCHLOROTHIAZIDE [Concomitant]
     Dosage: UNK
     Route: 048
  2. JANUVIA [Concomitant]
     Dosage: 50 MG/DAY
     Route: 048
  3. NORVASC [Suspect]
     Dosage: 5 MG, DAILY
     Route: 048
     Dates: end: 20120601
  4. GLIMICRON [Concomitant]
     Dosage: 40 MG/DAY
     Route: 048

REACTIONS (3)
  - MALAISE [None]
  - DYSPNOEA [None]
  - ATRIOVENTRICULAR BLOCK COMPLETE [None]
